FAERS Safety Report 21958597 (Version 1)
Quarter: 2023Q1

REPORT INFORMATION
  Report Type: Spontaneous
  Country: CZ (occurrence: CZ)
  Receive Date: 20230206
  Receipt Date: 20230206
  Transmission Date: 20230417
  Serious: Yes (Hospitalization)
  Sender: FDA-Public Use
  Company Number: CZ-FreseniusKabi-FK202301251

PATIENT
  Age: 72 Year
  Sex: Male

DRUGS (12)
  1. CARBOPLATIN [Suspect]
     Active Substance: CARBOPLATIN
     Indication: Squamous cell carcinoma
     Route: 065
  2. PACLITAXEL [Suspect]
     Active Substance: PACLITAXEL
     Indication: Squamous cell carcinoma
     Route: 065
  3. NIVOLUMAB [Concomitant]
     Active Substance: NIVOLUMAB
     Indication: Squamous cell carcinoma
     Route: 065
  4. IPILIMUMAB [Concomitant]
     Active Substance: IPILIMUMAB
     Indication: Squamous cell carcinoma
     Route: 065
  5. DENOSUMAB [Concomitant]
     Active Substance: DENOSUMAB
     Indication: Squamous cell carcinoma
     Route: 065
  6. BISOPROLOL [Concomitant]
     Active Substance: BISOPROLOL
     Indication: Product used for unknown indication
     Route: 065
  7. ASPIRIN [Concomitant]
     Active Substance: ASPIRIN
     Indication: Product used for unknown indication
     Route: 065
  8. ATORVASTATIN [Concomitant]
     Active Substance: ATORVASTATIN
     Indication: Product used for unknown indication
     Route: 065
  9. FUROSEMIDE [Concomitant]
     Active Substance: FUROSEMIDE
     Indication: Product used for unknown indication
     Route: 065
  10. SPIRONOLACTONE [Concomitant]
     Active Substance: SPIRONOLACTONE
     Indication: Product used for unknown indication
     Route: 065
  11. tamsulosin/dutasteride [Concomitant]
     Indication: Product used for unknown indication
  12. FAMOTIDINE [Concomitant]
     Active Substance: FAMOTIDINE
     Indication: Product used for unknown indication
     Route: 065

REACTIONS (5)
  - Pleurocutaneous fistula [Recovering/Resolving]
  - Febrile neutropenia [Recovering/Resolving]
  - Empyema [Recovering/Resolving]
  - COVID-19 [Recovering/Resolving]
  - Malnutrition [Recovering/Resolving]
